APPROVED DRUG PRODUCT: MEXILETINE HYDROCHLORIDE
Active Ingredient: MEXILETINE HYDROCHLORIDE
Strength: 250MG
Dosage Form/Route: CAPSULE;ORAL
Application: A216463 | Product #003 | TE Code: AB
Applicant: ANNORA PHARMA PRIVATE LTD
Approved: Nov 9, 2022 | RLD: No | RS: No | Type: RX